FAERS Safety Report 8762215 (Version 2)
Quarter: 2012Q4

REPORT INFORMATION
  Report Type: 
  Country: MX (occurrence: MX)
  Receive Date: 20120830
  Receipt Date: 20120830
  Transmission Date: 20130627
  Serious: Yes (Hospitalization, Other)
  Sender: FDA-Public Use
  Company Number: PHHY2012MX045529

PATIENT
  Sex: Female

DRUGS (4)
  1. CO-DIOVAN [Suspect]
     Indication: HYPERTENSION
     Dosage: 0.5 DF (160/12.5 mg), daily
     Dates: start: 20120419
  2. CO-DIOVAN [Suspect]
     Dosage: 0.25 DF (160/12.5 mg), UNK
     Dates: start: 20120515
  3. VENALOT (TROXERUTIN/COUMARIN) [Concomitant]
     Indication: CARDIOVASCULAR DISORDER
     Dosage: 1 tablet, daily
  4. TENORMIN [Concomitant]
     Dosage: 0.5 tablet, daily

REACTIONS (8)
  - Pneumonia [Recovered/Resolved]
  - Somnolence [Recovered/Resolved]
  - Fatigue [Recovered/Resolved]
  - Asthenia [Recovered/Resolved]
  - Feeling abnormal [Recovered/Resolved]
  - Hypersensitivity [Recovered/Resolved]
  - Blood pressure inadequately controlled [Recovered/Resolved]
  - Wrong technique in drug usage process [Recovered/Resolved]
